FAERS Safety Report 21804530 (Version 1)
Quarter: 2023Q1

REPORT INFORMATION
  Report Type: Spontaneous
  Country: US (occurrence: US)
  Receive Date: 20230102
  Receipt Date: 20230102
  Transmission Date: 20230418
  Serious: No
  Sender: FDA-Public Use
  Company Number: US-TEVA-2022-US-2838493

PATIENT
  Age: 49 Year
  Sex: Male

DRUGS (1)
  1. TESTOSTERONE CYPIONATE [Suspect]
     Active Substance: TESTOSTERONE CYPIONATE
     Indication: Product used for unknown indication
     Dosage: STRENGTH: 200 MG / ML,1ML ONCE A WEEK
     Route: 065
     Dates: start: 20221021

REACTIONS (4)
  - Fatigue [Unknown]
  - Hypersomnia [Unknown]
  - Appetite disorder [Unknown]
  - Product deposit [Unknown]

NARRATIVE: CASE EVENT DATE: 20221201
